FAERS Safety Report 7622913-X (Version None)
Quarter: 2011Q3

REPORT INFORMATION
  Report Type: 
  Country: None (occurrence: None)
  Receive Date: 20110720
  Receipt Date: 20110706
  Transmission Date: 20111222
  Serious: Yes (Hospitalization, Other)
  Sender: FDA-Public Use
  Company Number: US-BAYER-201034743NA

PATIENT
  Age: 42 Year
  Sex: Female

DRUGS (8)
  1. ACIPHEX [Concomitant]
     Route: 048
  2. FERROUS SULFATE TAB [Concomitant]
     Route: 048
  3. FLINTSTONES [Concomitant]
     Route: 048
  4. LOVENOX [Concomitant]
  5. COUMADIN [Concomitant]
  6. YAZ [Suspect]
     Indication: ORAL CONTRACEPTION
     Dosage: UNK
     Route: 048
     Dates: start: 20080501, end: 20080917
  7. YAZ [Suspect]
     Indication: PREMENSTRUAL SYNDROME
  8. YAZ [Suspect]
     Indication: HAEMORRHAGE

REACTIONS (1)
  - DEEP VEIN THROMBOSIS [None]
